FAERS Safety Report 8146354-4 (Version None)
Quarter: 2012Q1

REPORT INFORMATION
  Report Type: 
  Country: None (occurrence: None)
  Receive Date: 20120217
  Receipt Date: 20120206
  Transmission Date: 20120608
  Serious: Yes (Other)
  Sender: FDA-Public Use
  Company Number: JP-ROCHE-604415

PATIENT
  Age: 47 Year
  Sex: Male

DRUGS (23)
  1. ACTEMRA [Suspect]
     Route: 041
     Dates: start: 20080829, end: 20080829
  2. PREDNISOLONE [Concomitant]
     Route: 048
  3. FOLIC ACID [Concomitant]
     Dosage: DOSE FORM: PERORAL AGENT
     Route: 048
  4. MOBIC [Concomitant]
     Route: 048
  5. ETODOLAC [Concomitant]
     Route: 048
  6. ACTEMRA [Suspect]
     Route: 041
     Dates: start: 20080801, end: 20080801
  7. ACTEMRA [Suspect]
     Route: 041
     Dates: start: 20090123, end: 20090123
  8. ACTEMRA [Suspect]
     Route: 041
     Dates: start: 20081121, end: 20081121
  9. ACTEMRA [Suspect]
     Route: 041
     Dates: start: 20090626, end: 20090626
  10. METHOTREXATE [Concomitant]
     Dosage: DOSE FORM: PERORAL AGENT
     Route: 048
  11. PREDNISOLONE [Concomitant]
     Route: 048
  12. CYTOTEC [Concomitant]
     Route: 050
  13. ACTEMRA [Suspect]
     Indication: RHEUMATOID ARTHRITIS
     Route: 041
     Dates: start: 20080704, end: 20080704
  14. ACTEMRA [Suspect]
     Route: 041
     Dates: start: 20090306, end: 20090306
  15. FAMOTIDINE [Concomitant]
     Route: 048
  16. ACTEMRA [Suspect]
     Route: 041
     Dates: start: 20090403, end: 20090403
  17. ACTEMRA [Suspect]
     Route: 041
     Dates: start: 20090501, end: 20090501
  18. ACTEMRA [Suspect]
     Route: 041
     Dates: start: 20090529, end: 20090529
  19. PREDNISOLONE [Concomitant]
     Route: 048
  20. PREDNISOLONE [Concomitant]
     Route: 048
  21. ACTEMRA [Suspect]
     Route: 041
     Dates: start: 20080926, end: 20080926
  22. ACTEMRA [Suspect]
     Route: 041
     Dates: start: 20081023, end: 20081023
  23. ACTEMRA [Suspect]
     Route: 041
     Dates: start: 20081226, end: 20081226

REACTIONS (3)
  - PLATELET COUNT DECREASED [None]
  - VIITH NERVE PARALYSIS [None]
  - LIVER DISORDER [None]
